FAERS Safety Report 12528292 (Version 1)
Quarter: 2016Q3

REPORT INFORMATION
  Report Type: Spontaneous
  Country: FR (occurrence: FR)
  Receive Date: 20160705
  Receipt Date: 20160705
  Transmission Date: 20161109
  Serious: Yes (Other)
  Sender: FDA-Public Use
  Company Number: FR-BAYER-2016-013685

PATIENT
  Age: 38 Year
  Sex: Female

DRUGS (1)
  1. MIRENA [Suspect]
     Active Substance: LEVONORGESTREL
     Dosage: 20 MCG/24HR, CONT
     Route: 015
     Dates: start: 201308

REACTIONS (2)
  - Atrophic vulvovaginitis [Not Recovered/Not Resolved]
  - Vulval laceration [Not Recovered/Not Resolved]

NARRATIVE: CASE EVENT DATE: 2014
